FAERS Safety Report 18661460 (Version 2)
Quarter: 2021Q3

REPORT INFORMATION
  Report Type: Spontaneous
  Country: US (occurrence: US)
  Receive Date: 20201224
  Receipt Date: 20210819
  Transmission Date: 20211014
  Serious: Yes (Hospitalization, Other)
  Sender: FDA-Public Use
  Company Number: US-ASTRAZENECA-2020SF70750

PATIENT
  Age: 23695 Day
  Sex: Female

DRUGS (52)
  1. PROMETHAZINE [Concomitant]
     Active Substance: PROMETHAZINE HYDROCHLORIDE
  2. CLINDAMYCIN. [Concomitant]
     Active Substance: CLINDAMYCIN
  3. TRAMADOL. [Concomitant]
     Active Substance: TRAMADOL
  4. LOSARTAN. [Concomitant]
     Active Substance: LOSARTAN
  5. METHOCARBAMOL. [Concomitant]
     Active Substance: METHOCARBAMOL
  6. LISINOPRIL. [Concomitant]
     Active Substance: LISINOPRIL
  7. PREVACID 24 HR [Suspect]
     Active Substance: LANSOPRAZOLE
     Indication: GASTROOESOPHAGEAL REFLUX DISEASE
     Route: 065
     Dates: start: 2016, end: 2019
  8. METOPROLOL. [Concomitant]
     Active Substance: METOPROLOL
     Indication: CARDIAC DISORDER
     Dates: start: 2010
  9. PEPCID [Concomitant]
     Active Substance: FAMOTIDINE
  10. ENDOCET [Concomitant]
     Active Substance: ACETAMINOPHEN\OXYCODONE HYDROCHLORIDE
  11. IBUPROFEN. [Concomitant]
     Active Substance: IBUPROFEN
  12. DICYCLOMINE [Concomitant]
     Active Substance: DICYCLOMINE HYDROCHLORIDE
  13. NOVOLOG [Concomitant]
     Active Substance: INSULIN ASPART
  14. METAXALONE. [Concomitant]
     Active Substance: METAXALONE
  15. XALATAN [Concomitant]
     Active Substance: LATANOPROST
  16. PRILOSEC OTC [Suspect]
     Active Substance: OMEPRAZOLE MAGNESIUM
     Indication: GASTROOESOPHAGEAL REFLUX DISEASE
     Route: 048
     Dates: start: 2016, end: 2019
  17. PREVACID 24 HR [Suspect]
     Active Substance: LANSOPRAZOLE
     Indication: GASTROOESOPHAGEAL REFLUX DISEASE
     Route: 065
     Dates: start: 2008, end: 2019
  18. PROCARDIA XL [Concomitant]
     Active Substance: NIFEDIPINE
     Indication: CARDIAC DISORDER
     Dates: start: 2012
  19. ZANTAC [Concomitant]
     Active Substance: RANITIDINE HYDROCHLORIDE
  20. CLOTRIMAZOLE. [Concomitant]
     Active Substance: CLOTRIMAZOLE
  21. COLACE [Concomitant]
     Active Substance: DOCUSATE SODIUM
  22. GABAPENTIN. [Concomitant]
     Active Substance: GABAPENTIN
  23. DICLOFENAC [Concomitant]
     Active Substance: DICLOFENAC
  24. LYRICA [Concomitant]
     Active Substance: PREGABALIN
  25. BETAMETHASONE. [Concomitant]
     Active Substance: BETAMETHASONE
  26. PRILOSEC OTC [Suspect]
     Active Substance: OMEPRAZOLE MAGNESIUM
     Indication: GASTROOESOPHAGEAL REFLUX DISEASE
     Route: 048
     Dates: start: 2008, end: 2019
  27. PANTOPRAZOLE [Suspect]
     Active Substance: PANTOPRAZOLE
     Indication: GASTROOESOPHAGEAL REFLUX DISEASE
     Dosage: GENERIC
     Route: 065
     Dates: start: 2008, end: 2019
  28. HYDRALAZINE [Concomitant]
     Active Substance: HYDRALAZINE HYDROCHLORIDE
  29. ZETIA [Concomitant]
     Active Substance: EZETIMIBE
  30. CRESTOR [Concomitant]
     Active Substance: ROSUVASTATIN CALCIUM
  31. SIMVASTATIN. [Concomitant]
     Active Substance: SIMVASTATIN
  32. CARVEDILOL. [Concomitant]
     Active Substance: CARVEDILOL
     Indication: CARDIAC DISORDER
     Dates: start: 2008
  33. CYCLOBENZAPRINE. [Concomitant]
     Active Substance: CYCLOBENZAPRINE
  34. OMEPRAZOLE. [Concomitant]
     Active Substance: OMEPRAZOLE
  35. LEVEMIR [Concomitant]
     Active Substance: INSULIN DETEMIR
  36. VICTOZA [Concomitant]
     Active Substance: LIRAGLUTIDE
  37. ENOXAPARIN [Concomitant]
     Active Substance: ENOXAPARIN
  38. CIPRO [Concomitant]
     Active Substance: CIPROFLOXACIN HYDROCHLORIDE
     Indication: ANTIBIOTIC THERAPY
     Dates: start: 2010
  39. NAPROXEN. [Concomitant]
     Active Substance: NAPROXEN
  40. ROXICET [Concomitant]
     Active Substance: ACETAMINOPHEN\OXYCODONE HYDROCHLORIDE
  41. XARELTO [Concomitant]
     Active Substance: RIVAROXABAN
  42. METFORMIN [Concomitant]
     Active Substance: METFORMIN HYDROCHLORIDE
  43. METOCLOPRAMIDE. [Concomitant]
     Active Substance: METOCLOPRAMIDE
  44. DILTIAZEM. [Concomitant]
     Active Substance: DILTIAZEM
  45. PANTOPRAZOLE [Suspect]
     Active Substance: PANTOPRAZOLE
     Indication: GASTROOESOPHAGEAL REFLUX DISEASE
     Route: 065
     Dates: start: 2008
  46. LEVAQUIN [Concomitant]
     Active Substance: LEVOFLOXACIN
  47. PRAVASTATIN. [Concomitant]
     Active Substance: PRAVASTATIN
  48. FLUCONAZOLE. [Concomitant]
     Active Substance: FLUCONAZOLE
  49. ATORVASTATIN [Concomitant]
     Active Substance: ATORVASTATIN
  50. HYDROCHLOROTHIAZIDE. [Concomitant]
     Active Substance: HYDROCHLOROTHIAZIDE
  51. FLAGYL [Concomitant]
     Active Substance: METRONIDAZOLE\METRONIDAZOLE HYDROCHLORIDE
  52. LABETALOL [Concomitant]
     Active Substance: LABETALOL\LABETALOL HYDROCHLORIDE

REACTIONS (2)
  - Acute kidney injury [Not Recovered/Not Resolved]
  - Renal failure [Unknown]

NARRATIVE: CASE EVENT DATE: 20161026
